FAERS Safety Report 9686106 (Version 1)
Quarter: 2013Q4

REPORT INFORMATION
  Report Type: Spontaneous
  Country: PL (occurrence: PL)
  Receive Date: 20131113
  Receipt Date: 20131113
  Transmission Date: 20140711
  Serious: Yes (Death, Hospitalization)
  Sender: FDA-Public Use
  Company Number: PL-ACTAVIS-2013-20117

PATIENT
  Age: 21 Year
  Sex: Male

DRUGS (6)
  1. CARBAMAZEPINE (UNKNOWN) [Suspect]
     Indication: DEPENDENCE
     Dosage: UNK
     Route: 065
     Dates: start: 2009
  2. CARBAMAZEPINE (UNKNOWN) [Suspect]
     Indication: SUBSTANCE USE
  3. DIAZEPAM (UNKNOWN) [Suspect]
     Indication: DEPENDENCE
     Dosage: UNK
     Route: 065
     Dates: start: 2009
  4. DIAZEPAM (UNKNOWN) [Suspect]
     Indication: SUBSTANCE USE
  5. MOCLOBEMIDE (UNKNOWN) [Suspect]
     Indication: DEPENDENCE
     Dosage: UNK
     Route: 065
     Dates: start: 2009
  6. MOCLOBEMIDE (UNKNOWN) [Suspect]
     Indication: SUBSTANCE USE

REACTIONS (4)
  - Serotonin syndrome [Fatal]
  - Multi-organ failure [Fatal]
  - Polysubstance dependence [Fatal]
  - Toxicity to various agents [Fatal]
